FAERS Safety Report 5366379-1 (Version None)
Quarter: 2007Q2

REPORT INFORMATION
  Report Type: 
  Country: None (occurrence: None)
  Receive Date: 20070622
  Receipt Date: 20070612
  Transmission Date: 20071010
  Serious: Yes (Disabling, Other)
  Sender: FDA-Public Use
  Company Number: US-JNJFOC-20070204633

PATIENT
  Age: 65 Year
  Sex: Male
  Weight: 77.11 kg

DRUGS (11)
  1. REMICADE [Suspect]
     Indication: INTERSTITIAL LUNG DISEASE
     Route: 042
     Dates: end: 20070124
  2. REMICADE [Suspect]
     Indication: RHEUMATOID ARTHRITIS
     Route: 042
     Dates: end: 20070124
  3. SPIRIVA [Concomitant]
  4. ASCORBIC ACID [Concomitant]
  5. MULTI-VITAMIN [Concomitant]
  6. FISH OIL [Concomitant]
  7. CALCIUM CHLORIDE [Concomitant]
  8. KETOCONAZOLE [Concomitant]
  9. ZEASORB [Concomitant]
  10. SPIRIVA [Concomitant]
  11. METROGEL [Concomitant]

REACTIONS (4)
  - ANTINUCLEAR ANTIBODY POSITIVE [None]
  - LACRIMATION INCREASED [None]
  - PHOTOSENSITIVITY REACTION [None]
  - TINEA INFECTION [None]
